FAERS Safety Report 9402928 (Version 1)
Quarter: 2013Q3

REPORT INFORMATION
  Report Type: Spontaneous
  Country: GR (occurrence: GR)
  Receive Date: 20130716
  Receipt Date: 20130716
  Transmission Date: 20140515
  Serious: Yes (Hospitalization)
  Sender: FDA-Public Use
  Company Number: GR-UCBSA-091265

PATIENT
  Sex: Female

DRUGS (3)
  1. KEPPRA [Suspect]
     Dosage: UNSPECIFIED DOSE
     Route: 048
  2. DEBAKINE [Concomitant]
     Dosage: UNSPECIFIED DOSE
     Route: 048
  3. EPANUTIN [Concomitant]
     Dosage: UNSPECIFIED DOSE
     Route: 058

REACTIONS (2)
  - Melanoderma [Unknown]
  - Drug ineffective [Unknown]
